FAERS Safety Report 6241124-6 (Version None)
Quarter: 2009Q2

REPORT INFORMATION
  Report Type: 
  Country: None (occurrence: None)
  Receive Date: 20090619
  Receipt Date: 20090619
  Transmission Date: 20091009
  Serious: Yes (Other)
  Sender: FDA-Public Use
  Company Number: None

PATIENT
  Age: 45 Year
  Sex: Female
  Weight: 84.8226 kg

DRUGS (3)
  1. ZICAM COLD REMEDY NASEL GEL HOMEOPATHIC [Suspect]
     Indication: NASOPHARYNGITIS
     Dates: start: 20061001, end: 20070301
  2. ZICAM COLD REMEDY NASEL GEL HOMEOPATHIC [Suspect]
     Indication: NASOPHARYNGITIS
     Dates: start: 20071001, end: 20080301
  3. ZICAM COLD REMEDY NASEL GEL HOMEOPATHIC [Suspect]

REACTIONS (2)
  - HYPOSMIA [None]
  - NASAL DRYNESS [None]
